FAERS Safety Report 9780132 (Version 2)
Quarter: 2014Q1

REPORT INFORMATION
  Report Type: Spontaneous
  Country: DE (occurrence: DE)
  Receive Date: 20131223
  Receipt Date: 20140110
  Transmission Date: 20141002
  Serious: Yes (Other)
  Sender: FDA-Public Use
  Company Number: DE-TEVA-452154GER

PATIENT
  Age: 73 Year
  Sex: Female
  Weight: 53 kg

DRUGS (7)
  1. PANTOPRAZOL [Suspect]
     Dosage: 40 MILLIGRAM DAILY;
     Dates: start: 201311, end: 20131202
  2. SILIMARIT KAPSELN [Concomitant]
     Route: 048
  3. SPIRO D [Concomitant]
     Dosage: 50 MILLIGRAM DAILY;
     Route: 048
  4. ALLOPURINOL [Concomitant]
     Dosage: 150 MILLIGRAM DAILY;
     Route: 048
  5. L-THYROXIN [Concomitant]
     Dosage: 50 MICROGRAM DAILY;
     Route: 048
  6. ONE-ALPHA 0,25 [Concomitant]
     Route: 048
  7. MIRTAZAPIN [Concomitant]
     Dosage: 15 MILLIGRAM DAILY;
     Route: 048

REACTIONS (3)
  - Glomerular filtration rate decreased [Recovered/Resolved]
  - Renal failure [Recovered/Resolved]
  - Tubulointerstitial nephritis [Recovered/Resolved]
